FAERS Safety Report 22282826 (Version 1)
Quarter: 2023Q2

REPORT INFORMATION
  Report Type: Spontaneous
  Country: US (occurrence: US)
  Receive Date: 20230504
  Receipt Date: 20230504
  Transmission Date: 20230721
  Serious: No
  Sender: FDA-Public Use
  Company Number: US-SA-2023SA136238

PATIENT
  Age: 6 Year
  Sex: Male

DRUGS (1)
  1. XENPOZYME [Suspect]
     Active Substance: OLIPUDASE ALFA-RPCP
     Indication: Niemann-Pick disease
     Dosage: UNK
     Route: 042

REACTIONS (3)
  - Iron deficiency [Unknown]
  - Fatigue [Unknown]
  - Nausea [Unknown]
